FAERS Safety Report 4518132-6 (Version None)
Quarter: 2004Q4

REPORT INFORMATION
  Report Type: 
  Country: None (occurrence: None)
  Receive Date: 20041130
  Receipt Date: 20041115
  Transmission Date: 20050328
  Serious: Yes (Hospitalization)
  Sender: FDA-Public Use
  Company Number: 2004-122298-NL

PATIENT
  Age: 30 Year
  Sex: Female

DRUGS (4)
  1. NUVARING [Suspect]
     Indication: CONTRACEPTION
     Dosage: DF VAGINAL
     Route: 067
     Dates: start: 20030101
  2. LITALGIN [Concomitant]
  3. CEPHALEXIN MONOHYDRATE [Concomitant]
  4. IBUPROFEN [Concomitant]

REACTIONS (3)
  - CHOLELITHIASIS [None]
  - METRORRHAGIA [None]
  - VAGINITIS [None]
